FAERS Safety Report 5368352-6 (Version None)
Quarter: 2007Q2

REPORT INFORMATION
  Report Type: 
  Country: None (occurrence: None)
  Receive Date: 20070619
  Receipt Date: 20070612
  Transmission Date: 20071010
  Serious: Yes (Other)
  Sender: FDA-Public Use
  Company Number: TCI2007A02727

PATIENT

DRUGS (3)
  1. LANSOPRAZOLE [Suspect]
     Dosage: 60 MG (60 MG, 1 D) INTRAVENOUS
     Route: 042
     Dates: start: 20070602
  2. RENIVACE (ENALAPRIL MALEATE) (TABLETS) [Concomitant]
  3. ARTIST (CARVEDILOL) (TABLETS) [Concomitant]

REACTIONS (3)
  - CARDIAC FAILURE [None]
  - TORSADE DE POINTES [None]
  - VENTRICULAR FIBRILLATION [None]
